FAERS Safety Report 4485329-3 (Version None)
Quarter: 2004Q3

REPORT INFORMATION
  Report Type: 
  Country: None (occurrence: None)
  Receive Date: 20040921
  Receipt Date: 20040521
  Transmission Date: 20050211
  Serious: Yes (Death, Hospitalization)
  Sender: FDA-Public Use
  Company Number: 163-20785-04050556

PATIENT
  Age: 56 Year
  Sex: Female
  Weight: 67.1324 kg

DRUGS (2)
  1. THALIDOMIDE\PLACEBO (50 MILLIGRAM, CAPSULES) [Suspect]
     Indication: SCLERODERMA
     Dosage: 300 MG, Q.H.S., ORAL
     Route: 048
     Dates: start: 20030728, end: 20040518
  2. TRAZODONE HCL [Concomitant]

REACTIONS (2)
  - DEATH [None]
  - PNEUMONIA ASPIRATION [None]
